FAERS Safety Report 6386002-7 (Version None)
Quarter: 2009Q4

REPORT INFORMATION
  Report Type: 
  Country: None (occurrence: None)
  Receive Date: 20091002
  Receipt Date: 20081030
  Transmission Date: 20100525
  Serious: No
  Sender: FDA-Public Use
  Company Number: US-ASTRAZENECA-2008UW24362

PATIENT
  Age: 84 Year
  Sex: Female
  Weight: 65.8 kg

DRUGS (9)
  1. ARIMIDEX [Suspect]
     Indication: BREAST CANCER
     Route: 048
     Dates: start: 20060101
  2. ALTACE [Concomitant]
  3. TIMOLOL [Concomitant]
  4. FUROSEMIDE [Concomitant]
  5. METFORMIN [Concomitant]
  6. JANUVIA [Concomitant]
  7. CENTRUM SILVER VITAMINS [Concomitant]
  8. CALCIUM WITH VITAMIN D [Concomitant]
  9. ADVIL [Concomitant]

REACTIONS (3)
  - ARTHRITIS [None]
  - BODY HEIGHT DECREASED [None]
  - OEDEMA PERIPHERAL [None]
